FAERS Safety Report 11754908 (Version 2)
Quarter: 2016Q1

REPORT INFORMATION
  Report Type: Report from Study
  Country: US (occurrence: US)
  Receive Date: 20151119
  Receipt Date: 20160105
  Transmission Date: 20160525
  Serious: Yes (Death)
  Sender: FDA-Public Use
  Company Number: US-ACTELION-A-US2015-127205

PATIENT
  Age: 67 Year
  Sex: Male

DRUGS (3)
  1. ADCIRCA [Concomitant]
     Active Substance: TADALAFIL
  2. MACITENTAN [Suspect]
     Active Substance: MACITENTAN
     Indication: PULMONARY ARTERIAL HYPERTENSION
     Dosage: UNK
     Route: 048
     Dates: start: 20140903
  3. TYVASO [Concomitant]
     Active Substance: TREPROSTINIL

REACTIONS (1)
  - Death [Fatal]
